FAERS Safety Report 20709668 (Version 1)
Quarter: 2022Q2

REPORT INFORMATION
  Report Type: Spontaneous
  Country: US (occurrence: US)
  Receive Date: 20220414
  Receipt Date: 20220414
  Transmission Date: 20220721
  Serious: No
  Sender: FDA-Public Use
  Company Number: US-VIIV HEALTHCARE LIMITED-US2022AMR063130

PATIENT
  Sex: Male

DRUGS (2)
  1. FOSTEMSAVIR [Suspect]
     Active Substance: FOSTEMSAVIR
     Indication: Product used for unknown indication
     Dosage: 1200 MG, 1D
  2. SYMTUZA [Concomitant]
     Active Substance: COBICISTAT\DARUNAVIR\EMTRICITABINE\TENOFOVIR ALAFENAMIDE
     Indication: Product used for unknown indication
     Dosage: UNK

REACTIONS (2)
  - Product prescribing issue [Unknown]
  - Product use issue [Unknown]
